FAERS Safety Report 16566591 (Version 1)
Quarter: 2019Q3

REPORT INFORMATION
  Report Type: Spontaneous
  Country: GB (occurrence: GB)
  Receive Date: 20190712
  Receipt Date: 20190712
  Transmission Date: 20191004
  Serious: Yes (Other)
  Sender: FDA-Public Use
  Company Number: GB-PFIZER INC-2019291073

PATIENT
  Age: 48 Year
  Sex: Male
  Weight: 107 kg

DRUGS (4)
  1. NAPROXEN. [Concomitant]
     Active Substance: NAPROXEN
     Indication: PAIN
     Dosage: 1 DF, 2X/DAY (AS NEEDED) (TAKE ONE TWICE DAILY AS NEEDED)
     Dates: start: 20190429
  2. METHYLPREDNISOLONE ACETATE. [Suspect]
     Active Substance: METHYLPREDNISOLONE ACETATE
     Dosage: 40 MG/ML, UNK
     Route: 014
     Dates: start: 20190605, end: 20190606
  3. LIDOCAINE. [Suspect]
     Active Substance: LIDOCAINE
     Dosage: 10 MG/ML, UNK
     Route: 014
     Dates: start: 20190605, end: 20190606
  4. OMEPRAZOLE. [Concomitant]
     Active Substance: OMEPRAZOLE
     Indication: DYSPEPSIA
     Dosage: 1 DF, 1X/DAY
     Route: 048
     Dates: start: 20190429

REACTIONS (1)
  - Pruritus generalised [Not Recovered/Not Resolved]

NARRATIVE: CASE EVENT DATE: 20190608
